FAERS Safety Report 5787181-2 (Version None)
Quarter: 2008Q2

REPORT INFORMATION
  Report Type: 
  Country: None (occurrence: None)
  Receive Date: 20080625
  Receipt Date: 20070919
  Transmission Date: 20081010
  Serious: No
  Sender: FDA-Public Use
  Company Number: US-ASTRAZENECA-2007UW22086

PATIENT
  Age: 81 Year
  Sex: Female
  Weight: 83.9 kg

DRUGS (9)
  1. PULMICORT RESPULES [Suspect]
     Indication: ASTHMA
     Route: 055
  2. PULMICORT RESPULES [Suspect]
     Route: 055
  3. PULMICORT RESPULES [Suspect]
     Route: 055
  4. THEO-DUR [Concomitant]
  5. VERAPAMIL [Concomitant]
  6. HRT [Concomitant]
  7. ASPIRIN [Concomitant]
     Route: 048
  8. ZESTRIL [Concomitant]
  9. STOOL SOFTENER [Concomitant]

REACTIONS (4)
  - CHEST DISCOMFORT [None]
  - COUGH [None]
  - HEADACHE [None]
  - UNDERDOSE [None]
